FAERS Safety Report 6454871-8 (Version None)
Quarter: 2009Q4

REPORT INFORMATION
  Report Type: 
  Country: None (occurrence: None)
  Receive Date: 20091124
  Receipt Date: 20091118
  Transmission Date: 20100525
  Serious: Yes (Other)
  Sender: FDA-Public Use
  Company Number: US-MERCK-0908USA03738

PATIENT
  Age: 76 Year
  Sex: Female

DRUGS (2)
  1. FOSAMAX [Suspect]
     Indication: OSTEOPOROSIS
     Route: 048
     Dates: end: 20060201
  2. FOSAMAX [Suspect]
     Route: 048
     Dates: start: 19970101

REACTIONS (12)
  - ABSCESS ORAL [None]
  - DENTAL CARIES [None]
  - DENTAL FISTULA [None]
  - GINGIVAL DISORDER [None]
  - GINGIVAL INFECTION [None]
  - IMPAIRED HEALING [None]
  - OEDEMA MOUTH [None]
  - ORAL INFECTION [None]
  - OSTEOMYELITIS [None]
  - OSTEONECROSIS [None]
  - PERIODONTAL DISEASE [None]
  - TOOTH DISORDER [None]
